FAERS Safety Report 13126181 (Version 1)
Quarter: 2017Q1

REPORT INFORMATION
  Report Type: Spontaneous
  Country: CZ (occurrence: CZ)
  Receive Date: 20170118
  Receipt Date: 20170118
  Transmission Date: 20170509
  Serious: Yes (Hospitalization, Other)
  Sender: FDA-Public Use
  Company Number: CZ-GILEAD-2017-0251729

PATIENT
  Sex: Male

DRUGS (10)
  1. REBETOL [Suspect]
     Active Substance: RIBAVIRIN
     Dosage: UNK MG, UNK
     Route: 065
     Dates: start: 20161222, end: 201612
  2. HARVONI [Suspect]
     Active Substance: LEDIPASVIR\SOFOSBUVIR
     Indication: HEPATITIS C
     Dosage: UNK
     Route: 048
     Dates: start: 20161124, end: 20170105
  3. IMMUNATE                           /00286701/ [Concomitant]
     Indication: HAEMORRHAGE
  4. DETRALEX [Concomitant]
     Active Substance: DIOSMIN\HESPERIDIN
  5. FINPROS [Concomitant]
     Dosage: 5 MG, UNK
  6. REBETOL [Suspect]
     Active Substance: RIBAVIRIN
     Indication: HEPATITIS C
     Dosage: 1200 MG, UNK
     Route: 065
     Dates: start: 20161124
  7. REBETOL [Suspect]
     Active Substance: RIBAVIRIN
     Dosage: 600 MG, UNK
     Route: 065
     Dates: end: 20161215
  8. TAMSULOSIN [Concomitant]
     Active Substance: TAMSULOSIN
  9. MIRZATEN [Concomitant]
     Active Substance: MIRTAZAPINE
     Dosage: 30 MG, UNK
  10. HELICID                            /00661201/ [Concomitant]

REACTIONS (7)
  - Headache [Recovered/Resolved]
  - Confusional state [Recovered/Resolved]
  - Fatigue [Unknown]
  - Suicidal ideation [Recovered/Resolved]
  - Feeling abnormal [Recovered/Resolved]
  - Abnormal behaviour [Recovered/Resolved]
  - Anaemia [Recovered/Resolved]
